FAERS Safety Report 7544160-2 (Version None)
Quarter: 2011Q2

REPORT INFORMATION
  Report Type: 
  Country: None (occurrence: None)
  Receive Date: 20110613
  Receipt Date: 20070709
  Transmission Date: 20111010
  Serious: Yes (Death, Hospitalization, Other)
  Sender: FDA-Public Use
  Company Number: PHMT2007CA01172

PATIENT
  Sex: Male

DRUGS (1)
  1. SANDOSTATIN [Suspect]
     Indication: HEPATIC NEOPLASM MALIGNANT
     Dosage: 20 MG, EVERY 4 WEEKS
     Route: 030
     Dates: start: 20060927, end: 20070510

REACTIONS (10)
  - GENERAL PHYSICAL HEALTH DETERIORATION [None]
  - NEOPLASM MALIGNANT [None]
  - HEPATIC HAEMORRHAGE [None]
  - ASTHENIA [None]
  - ABDOMINAL DISTENSION [None]
  - ASPIRATION [None]
  - RENAL IMPAIRMENT [None]
  - VOMITING [None]
  - MALAISE [None]
  - DEATH [None]
